FAERS Safety Report 8615583-5 (Version None)
Quarter: 2012Q3

REPORT INFORMATION
  Report Type: 
  Country: None (occurrence: None)
  Receive Date: 20120823
  Receipt Date: 20120820
  Transmission Date: 20120928
  Serious: Yes (Death)
  Sender: FDA-Public Use
  Company Number: BR-JNJFOC-20120810243

PATIENT
  Sex: Male

DRUGS (1)
  1. ACETAMINOPHEN W/ CODEINE [Suspect]
     Indication: BACK PAIN
     Route: 048
     Dates: start: 20120701

REACTIONS (1)
  - OESOPHAGEAL CARCINOMA [None]
